FAERS Safety Report 11170794 (Version 1)
Quarter: 2015Q2

REPORT INFORMATION
  Report Type: Spontaneous
  Country: US (occurrence: None)
  Receive Date: 20150605
  Receipt Date: 20150605
  Transmission Date: 20150821
  Serious: No
  Sender: FDA-Public Use
  Company Number: None

PATIENT
  Age: 60 Year
  Sex: Female

DRUGS (2)
  1. ZOLPIDEM [Concomitant]
     Active Substance: ZOLPIDEM\ZOLPIDEM TARTRATE
  2. LEVOXYL [Suspect]
     Active Substance: LEVOTHYROXINE SODIUM
     Indication: AUTOIMMUNE THYROIDITIS
     Route: 048
     Dates: start: 20140207

REACTIONS (42)
  - Product quality issue [None]
  - Feeling abnormal [None]
  - Retching [None]
  - Eating disorder [None]
  - Nerve compression [None]
  - Feeling jittery [None]
  - Adverse reaction [None]
  - Weight decreased [None]
  - Bone pain [None]
  - Dry skin [None]
  - Depression [None]
  - Libido decreased [None]
  - Gingival pain [None]
  - Visual impairment [None]
  - Vision blurred [None]
  - Musculoskeletal stiffness [None]
  - Crying [None]
  - Night sweats [None]
  - Balance disorder [None]
  - Malaise [None]
  - Constipation [None]
  - Skin burning sensation [None]
  - Alopecia [None]
  - Dysphagia [None]
  - Pyrexia [None]
  - Product substitution issue [None]
  - Tongue coated [None]
  - Tooth disorder [None]
  - Musculoskeletal disorder [None]
  - Pruritus [None]
  - Joint stiffness [None]
  - Tremor [None]
  - Skin tightness [None]
  - Vaginal infection [None]
  - Hypersensitivity [None]
  - Glossodynia [None]
  - Cheilitis [None]
  - Tongue dry [None]
  - Throat irritation [None]
  - Faeces discoloured [None]
  - Discomfort [None]
  - Dysuria [None]

NARRATIVE: CASE EVENT DATE: 20140820
